FAERS Safety Report 10247357 (Version 1)
Quarter: 2014Q2

REPORT INFORMATION
  Report Type: Spontaneous
  Country: US (occurrence: US)
  Receive Date: 20140619
  Receipt Date: 20140619
  Transmission Date: 20141212
  Serious: No
  Sender: FDA-Public Use
  Company Number: US-PFIZER INC-2014164416

PATIENT
  Age: 70 Year
  Sex: Male
  Weight: 104.31 kg

DRUGS (2)
  1. SUTENT [Suspect]
     Indication: LUNG NEOPLASM
     Dosage: 50 MG, DAILY
     Dates: start: 201312, end: 201406
  2. ATORVASTATIN [Concomitant]
     Indication: BLOOD CHOLESTEROL ABNORMAL
     Dosage: 80 MG, DAILY

REACTIONS (2)
  - Disease progression [Unknown]
  - Lung neoplasm [Unknown]
